FAERS Safety Report 5988592-2 (Version None)
Quarter: 2008Q4

REPORT INFORMATION
  Report Type: 
  Country: None (occurrence: None)
  Receive Date: 20081208
  Receipt Date: 20081208
  Transmission Date: 20090506
  Serious: Yes (Other)
  Sender: FDA-Public Use
  Company Number: None

PATIENT
  Age: 49 Year
  Sex: Male
  Weight: 59.8748 kg

DRUGS (1)
  1. METFORMIN HYDROCHLORIDE [Suspect]
     Indication: DIABETES MELLITUS
     Dosage: 2 TABLETS 2 X DAILY PO
     Route: 048
     Dates: start: 20080710, end: 20081008

REACTIONS (4)
  - DRUG HYPERSENSITIVITY [None]
  - MUSCLE TIGHTNESS [None]
  - MYOCARDIAL INFARCTION [None]
  - PAIN IN EXTREMITY [None]
